FAERS Safety Report 4626494-4 (Version None)
Quarter: 2005Q2

REPORT INFORMATION
  Report Type: 
  Country: None (occurrence: None)
  Receive Date: 20050404
  Receipt Date: 20050329
  Transmission Date: 20051028
  Serious: Yes (Other)
  Sender: FDA-Public Use
  Company Number: US-MERCK-0503USA05149

PATIENT
  Age: 40 Year
  Sex: Male

DRUGS (3)
  1. ZETIA [Suspect]
     Indication: LOW DENSITY LIPOPROTEIN INCREASED
     Route: 048
     Dates: start: 20050325, end: 20050329
  2. [THERAPY UNSPECIFIED] [Concomitant]
     Route: 065
  3. STATIN (UNSPECIFIED) [Concomitant]
     Route: 065

REACTIONS (2)
  - OEDEMA PERIPHERAL [None]
  - SWOLLEN TONGUE [None]
